FAERS Safety Report 4447082-9 (Version None)
Quarter: 2004Q3

REPORT INFORMATION
  Report Type: 
  Country: None (occurrence: None)
  Receive Date: 20040813
  Receipt Date: 20040511
  Transmission Date: 20050211
  Serious: No
  Sender: FDA-Public Use
  Company Number: S04-USA-03576-01

PATIENT
  Age: 79 Year
  Sex: Male

DRUGS (9)
  1. NAMENDA [Suspect]
     Indication: VASCULAR DEMENTIA
     Dosage: 10 MG QD PO
     Route: 048
     Dates: start: 20040405, end: 20040411
  2. NAMENDA [Suspect]
     Indication: VASCULAR DEMENTIA
     Dosage: 15 MG QD PO
     Route: 048
     Dates: start: 20040412, end: 20040418
  3. NAMENDA [Suspect]
     Indication: VASCULAR DEMENTIA
     Dosage: 20 MG QD PO
     Route: 048
     Dates: start: 20040419, end: 20040426
  4. NAMENDA [Suspect]
     Indication: VASCULAR DEMENTIA
     Dosage: 10 MG QD PO
     Route: 048
     Dates: start: 20040427
  5. NAMENDA [Suspect]
     Indication: VASCULAR DEMENTIA
     Dosage: 5 MG QD PO
     Route: 048
     Dates: start: 20040329, end: 20040404
  6. ASPIRIN [Concomitant]
  7. AMBIEN [Concomitant]
  8. ARICEPT [Concomitant]
  9. MONOPRIL [Concomitant]

REACTIONS (3)
  - CONFUSIONAL STATE [None]
  - HYPERSOMNIA [None]
  - IRRITABILITY [None]
